FAERS Safety Report 18821286 (Version 2)
Quarter: 2021Q1

REPORT INFORMATION
  Report Type: Spontaneous
  Country: US (occurrence: US)
  Receive Date: 20210201
  Receipt Date: 20210305
  Transmission Date: 20210419
  Serious: Yes (Death)
  Sender: FDA-Public Use
  Company Number: US-PFIZER INC-2020288112

PATIENT
  Age: 54 Year
  Sex: Female

DRUGS (2)
  1. RETACRIT [Suspect]
     Active Substance: EPOETIN ALFA-EPBX
     Indication: CHRONIC KIDNEY DISEASE
     Dosage: 20000 IU, WEEKLY, [SIG: INJECT 20,000 UNITS SQ ONCE WEEKLY + 5 RF]
     Route: 058
  2. RETACRIT [Suspect]
     Active Substance: EPOETIN ALFA-EPBX
     Indication: NORMOCYTIC ANAEMIA
     Dosage: 40000 IU

REACTIONS (2)
  - Death [Fatal]
  - Off label use [Unknown]
